FAERS Safety Report 5826002-6 (Version None)
Quarter: 2008Q3

REPORT INFORMATION
  Report Type: 
  Country: None (occurrence: None)
  Receive Date: 20080729
  Receipt Date: 20060908
  Transmission Date: 20090109
  Serious: Yes (Hospitalization)
  Sender: FDA-Public Use
  Company Number: IT-ROCHE-573296

PATIENT
  Sex: Female

DRUGS (2)
  1. PEGASYS [Suspect]
     Route: 065
     Dates: start: 20060321, end: 20070125
  2. REBETOL [Suspect]
     Route: 065
     Dates: start: 20060321, end: 20070125

REACTIONS (2)
  - ANAEMIA [None]
  - METRORRHAGIA [None]
